FAERS Safety Report 18114886 (Version 4)
Quarter: 2021Q2

REPORT INFORMATION
  Report Type: Spontaneous
  Country: US (occurrence: US)
  Receive Date: 20200805
  Receipt Date: 20210531
  Transmission Date: 20210717
  Serious: Yes (Hospitalization, Other)
  Sender: FDA-Public Use
  Company Number: US-PFIZER INC-2020000433

PATIENT
  Age: 68 Year
  Sex: Female
  Weight: 123.83 kg

DRUGS (4)
  1. NORPACE CR [Suspect]
     Active Substance: DISOPYRAMIDE PHOSPHATE
     Indication: HYPERTROPHIC CARDIOMYOPATHY
     Dosage: UNK (SOMETIME IN 2012?2013)
  2. NORPACE CR [Suspect]
     Active Substance: DISOPYRAMIDE PHOSPHATE
     Dosage: 250 MG, TWICE A DAY
     Route: 048
  3. NORPACE CR [Suspect]
     Active Substance: DISOPYRAMIDE PHOSPHATE
     Dosage: 100 MG, TWICE A DAY (12 HR CAPSULE/ONE OF EACH DOSE)
     Route: 048
     Dates: start: 20191231
  4. NORPACE CR [Suspect]
     Active Substance: DISOPYRAMIDE PHOSPHATE
     Indication: PULMONARY HYPERTENSION
     Dosage: 50 MG, TWICE A DAY (12 HR CAPSULE/ONE OF EACH DOSE)
     Route: 048
     Dates: start: 20191231

REACTIONS (5)
  - Cardiac failure congestive [Unknown]
  - Atrial fibrillation [Unknown]
  - Ventricular extrasystoles [Unknown]
  - Confusional state [Unknown]
  - Increased bronchial secretion [Unknown]
